FAERS Safety Report 7505988-8 (Version None)
Quarter: 2011Q2

REPORT INFORMATION
  Report Type: 
  Country: None (occurrence: None)
  Receive Date: 20110526
  Receipt Date: 20110512
  Transmission Date: 20111010
  Serious: Yes (Other)
  Sender: FDA-Public Use
  Company Number: PHHY2011US39316

PATIENT
  Sex: Female

DRUGS (11)
  1. DIOVAN [Suspect]
     Dosage: 80 MG, QD
  2. LEXAPRO [Concomitant]
     Dosage: 20 MG, QD
  3. SIMVASTATIN [Concomitant]
     Dosage: 40 MG, QD
  4. PRILOSEC [Concomitant]
     Dosage: 40 MG, QD
  5. CLONAZEPAM [Concomitant]
     Dosage: 1 MG, QD
  6. GABAPENTIN [Concomitant]
     Dosage: 100 MG, UNK
  7. LEVOTHYROXINE SODIUM [Concomitant]
     Dosage: 100 UG, QD
  8. ZYPREXA [Concomitant]
     Dosage: 5 MG, UNK
  9. AMITIZA [Concomitant]
     Dosage: 8 UG, QD
  10. FOSAMAX [Concomitant]
     Dosage: 70 MG, UNK
  11. METFORMIN HCL [Concomitant]
     Dosage: 500 MG, UNK

REACTIONS (4)
  - DRUG PRESCRIBING ERROR [None]
  - ACCIDENT [None]
  - BLOOD PRESSURE INADEQUATELY CONTROLLED [None]
  - WRONG TECHNIQUE IN DRUG USAGE PROCESS [None]
